FAERS Safety Report 17806381 (Version 4)
Quarter: 2020Q4

REPORT INFORMATION
  Report Type: Spontaneous
  Country: JP (occurrence: JP)
  Receive Date: 20200520
  Receipt Date: 20201019
  Transmission Date: 20210113
  Serious: Yes (Other)
  Sender: FDA-Public Use
  Company Number: JP-AMGEN-JPNSP2020078420

PATIENT
  Age: 85 Year
  Sex: Female

DRUGS (6)
  1. LOXOPROFEN NA [Suspect]
     Active Substance: LOXOPROFEN SODIUM
     Indication: INTERNAL HAEMORRHAGE
     Dosage: 180 MILLIGRAM, QD
     Route: 065
     Dates: start: 20200428, end: 20200501
  2. SUMILU STICK [Concomitant]
     Active Substance: FELBINAC
     Dosage: UNK (3 PERCENT)
     Dates: start: 20200422
  3. KETOPROFEN. [Concomitant]
     Active Substance: KETOPROFEN
     Dosage: 80 MILLIGRAM, QD
     Dates: start: 20200408, end: 20200422
  4. CALONAL [Suspect]
     Active Substance: ACETAMINOPHEN
     Indication: PRODUCT USED FOR UNKNOWN INDICATION
     Dosage: 1800 MILLIGRAM, QD
     Route: 065
     Dates: start: 20200401, end: 20200423
  5. EVENITY [Suspect]
     Active Substance: ROMOSOZUMAB-AQQG
     Indication: OSTEOPOROSIS
     Dosage: 210 MILLIGRAM
     Route: 058
     Dates: start: 20200408
  6. ACETAMINOPHEN. [Concomitant]
     Active Substance: ACETAMINOPHEN
     Indication: PAIN
     Dosage: 600 MILLIGRAM, TID
     Route: 048
     Dates: start: 202004, end: 20200423

REACTIONS (6)
  - Injection site pain [Recovered/Resolved]
  - Injection site swelling [Recovered/Resolved]
  - Injection site discolouration [Unknown]
  - Haemarthrosis [Recovered/Resolved]
  - Myalgia [Recovered/Resolved]
  - Muscle spasms [Recovered/Resolved]

NARRATIVE: CASE EVENT DATE: 202004
